FAERS Safety Report 22721587 (Version 2)
Quarter: 2024Q3

REPORT INFORMATION
  Report Type: Spontaneous
  Country: US (occurrence: US)
  Receive Date: 20230719
  Receipt Date: 20240723
  Transmission Date: 20241017
  Serious: No
  Sender: OTSUKA
  Company Number: US-OTSUKA-2023_009658

PATIENT
  Age: 4 Decade
  Sex: Female

DRUGS (3)
  1. BREXPIPRAZOLE [Suspect]
     Active Substance: BREXPIPRAZOLE
     Indication: Product used for unknown indication
     Dosage: 0.5 MG
     Route: 065
  2. BREXPIPRAZOLE [Suspect]
     Active Substance: BREXPIPRAZOLE
     Dosage: 0.5 MG, QOD
     Route: 065
  3. FLUOXETINE [Concomitant]
     Active Substance: FLUOXETINE HYDROCHLORIDE
     Indication: Product used for unknown indication
     Dosage: 60 MG
     Route: 065

REACTIONS (5)
  - Disturbance in attention [Unknown]
  - Agitation [Recovering/Resolving]
  - Insomnia [Recovering/Resolving]
  - Restlessness [Recovering/Resolving]
  - Off label use [Unknown]
